FAERS Safety Report 21530728 (Version 1)
Quarter: 2022Q4

REPORT INFORMATION
  Report Type: Spontaneous
  Country: US (occurrence: None)
  Receive Date: 20221028
  Receipt Date: 20221028
  Transmission Date: 20230112
  Serious: Yes (Death)
  Sender: FDA-Public Use
  Company Number: None

PATIENT
  Age: 58 Year
  Sex: Female
  Weight: 43.59 kg

DRUGS (18)
  1. ETOPOSIDE [Suspect]
     Active Substance: ETOPOSIDE
     Indication: Lung carcinoma cell type unspecified stage 0
     Dosage: FREQUENCY : DAILY;?
     Route: 048
  2. ALBUTEROL SULFATE [Concomitant]
  3. AMLODIPINE BESYLATE [Concomitant]
  4. CARBOPLATIN [Concomitant]
  5. DEXAMETHASONE [Concomitant]
  6. DUPIXENT [Concomitant]
  7. ESCITALOPRAM [Concomitant]
  8. HYDROXYZINE [Concomitant]
  9. IPRATROPIM-ALBUTEROL [Concomitant]
  10. LEVOTHYROXINE [Concomitant]
  11. MECILZINE HCI [Concomitant]
  12. METOPROLOL SUCCINATE [Concomitant]
  13. MS CONTIN [Concomitant]
  14. ONDANSETRON [Concomitant]
  15. OXYCODONE [Concomitant]
  16. PREDNISONE [Concomitant]
  17. SPIRIVA [Concomitant]
  18. TRELEGY [Concomitant]

REACTIONS (1)
  - Death [None]
